FAERS Safety Report 8190354-5 (Version None)
Quarter: 2012Q1

REPORT INFORMATION
  Report Type: 
  Country: None (occurrence: None)
  Receive Date: 20120307
  Receipt Date: 20120228
  Transmission Date: 20120608
  Serious: Yes (Other)
  Sender: FDA-Public Use
  Company Number: FR-PFIZER INC-2012058264

PATIENT
  Age: 87 Year
  Sex: Female

DRUGS (16)
  1. LASIX [Concomitant]
  2. ALPRAZOLAM [Concomitant]
  3. IMOVANE [Concomitant]
  4. PHLOROGLUCINOL [Concomitant]
  5. XYLOCAINE [Concomitant]
  6. PERINDOPRIL ERBUMINE [Concomitant]
  7. IMODIUM [Concomitant]
  8. LUMIGAN [Concomitant]
  9. OXYCODONE HCL [Suspect]
     Indication: PRODUCT USED FOR UNKNOWN INDICATION
     Dosage: 25 MG, SINGLE
  10. DURAGESIC-100 [Concomitant]
     Dosage: UNK
     Dates: start: 20111223
  11. ACETAMINOPHEN [Concomitant]
  12. CORDARONE [Suspect]
     Indication: PRODUCT USED FOR UNKNOWN INDICATION
     Dosage: 200 MG, UNK
  13. LANSOPRAZOLE [Concomitant]
  14. SMECTA ^IPSEN^ [Concomitant]
  15. LUDIOMIL [Concomitant]
  16. LEVOTHYROXINE SODIUM [Concomitant]

REACTIONS (2)
  - DRUG ADMINISTRATION ERROR [None]
  - RESPIRATORY DISTRESS [None]
